FAERS Safety Report 18026686 (Version 1)
Quarter: 2020Q3

REPORT INFORMATION
  Report Type: Spontaneous
  Country: FR (occurrence: FR)
  Receive Date: 20200716
  Receipt Date: 20200716
  Transmission Date: 20201103
  Serious: Yes (Hospitalization)
  Sender: FDA-Public Use
  Company Number: FR-TEVA-2020-FR-1799108

PATIENT
  Age: 89 Year
  Sex: Female
  Weight: 65 kg

DRUGS (9)
  1. ELIQUIS [Suspect]
     Active Substance: APIXABAN
     Indication: ATRIAL FIBRILLATION
     Dosage: 5 MG
     Route: 048
  2. AMIODARONE (CHLORHYDRATE D) [Concomitant]
     Active Substance: AMIODARONE HYDROCHLORIDE
  3. ISOPTINE 40 MG, COMPRIME ENROBE [Concomitant]
  4. DAFALGAN [Concomitant]
     Active Substance: ACETAMINOPHEN
  5. ATORVASTATINE [Concomitant]
     Active Substance: ATORVASTATIN
  6. EBIXA 20 MG, COMPRIME PELLICULE [Concomitant]
     Active Substance: MEMANTINE HYDROCHLORIDE
  7. ATORVASTATINE [Suspect]
     Active Substance: ATORVASTATIN
     Route: 065
  8. DIFFU K [Concomitant]
     Active Substance: POTASSIUM CHLORIDE
  9. NORSET [Concomitant]
     Active Substance: MIRTAZAPINE

REACTIONS (2)
  - Haematoma [Recovered/Resolved]
  - Haemorrhage [Recovered/Resolved]

NARRATIVE: CASE EVENT DATE: 20180620
